FAERS Safety Report 13845041 (Version 2)
Quarter: 2017Q3

REPORT INFORMATION
  Report Type: Report from Study
  Country: AR (occurrence: AR)
  Receive Date: 20170808
  Receipt Date: 20170824
  Transmission Date: 20171127
  Serious: Yes (Hospitalization)
  Sender: FDA-Public Use
  Company Number: PHHY2017AR115793

PATIENT
  Sex: Female

DRUGS (4)
  1. TRILEPTAL [Suspect]
     Active Substance: OXCARBAZEPINE
     Dosage: 900 MG, QD
     Route: 065
  2. TRILEPTAL [Suspect]
     Active Substance: OXCARBAZEPINE
     Indication: SEIZURE
     Dosage: 2 DF (300, UNITS NOT PROVIDED), QD
     Route: 065
     Dates: start: 2004, end: 2006
  3. TRILEPTAL [Suspect]
     Active Substance: OXCARBAZEPINE
     Dosage: 1200 MG, QD
     Route: 065
     Dates: start: 2006, end: 201708
  4. TRILEPTAL [Suspect]
     Active Substance: OXCARBAZEPINE
     Indication: EPILEPSY
     Dosage: 300 MG, QD
     Route: 065
     Dates: start: 2006, end: 2006

REACTIONS (2)
  - Loss of consciousness [Recovered/Resolved]
  - Seizure [Recovered/Resolved]

NARRATIVE: CASE EVENT DATE: 2006
